FAERS Safety Report 22522580 (Version 1)
Quarter: 2023Q2

REPORT INFORMATION
  Report Type: Report from Study
  Country: EG (occurrence: EG)
  Receive Date: 20230605
  Receipt Date: 20230605
  Transmission Date: 20230722
  Serious: Yes (Other)
  Sender: FDA-Public Use
  Company Number: EG-002147023-NVSC2023EG126276

PATIENT
  Age: 7 Year
  Sex: Male

DRUGS (4)
  1. OMNITROPE [Suspect]
     Active Substance: SOMATROPIN
     Indication: Short stature
     Dosage: 0.5 MG, QD
     Route: 058
     Dates: start: 20200108, end: 202205
  2. OMNITROPE [Suspect]
     Active Substance: SOMATROPIN
     Dosage: 0.9 MG, QD
     Route: 058
  3. LACTOFERRIN [Concomitant]
     Active Substance: LACTOFERRIN
     Indication: Anaemia
     Dosage: 1 DOSAGE FORM, QD (1.5 YEARS AGO BEFORE START OF OMNITROPE
     Route: 065
  4. HYDROFERRIN [Concomitant]
     Indication: Anaemia
     Dosage: UNK UNK, BID, (2 DROPPERS), (FROM START OF OMNITROPE)
     Route: 048

REACTIONS (2)
  - Growth retardation [Not Recovered/Not Resolved]
  - Off label use [Recovered/Resolved]

NARRATIVE: CASE EVENT DATE: 20220501
